APPROVED DRUG PRODUCT: LINACLOTIDE
Active Ingredient: LINACLOTIDE
Strength: 145MCG
Dosage Form/Route: CAPSULE;ORAL
Application: A209564 | Product #001
Applicant: MYLAN PHARMACEUTICALS INC
Approved: Feb 9, 2021 | RLD: No | RS: No | Type: DISCN